FAERS Safety Report 6637338-3 (Version None)
Quarter: 2010Q1

REPORT INFORMATION
  Report Type: 
  Country: None (occurrence: None)
  Receive Date: 20100311
  Receipt Date: 20100309
  Transmission Date: 20100710
  Serious: Yes (Disabling)
  Sender: FDA-Public Use
  Company Number: URSO-2010-032

PATIENT

DRUGS (2)
  1. URSO 250 [Suspect]
     Indication: CHOLELITHIASIS
     Dosage: ORAL
     Route: 048
  2. FAMOTIDINE [Suspect]

REACTIONS (1)
  - INTERSTITIAL LUNG DISEASE [None]
